FAERS Safety Report 23441920 (Version 1)
Quarter: 2024Q1

REPORT INFORMATION
  Report Type: Spontaneous
  Country: US (occurrence: US)
  Receive Date: 20240125
  Receipt Date: 20240125
  Transmission Date: 20240410
  Serious: No
  Sender: FDA-Public Use
  Company Number: US-OPELLA-2024OHG001921

PATIENT
  Age: 84 Year
  Sex: Female

DRUGS (3)
  1. ALLEGRA [Suspect]
     Active Substance: FEXOFENADINE HYDROCHLORIDE
     Indication: Pruritus
     Route: 065
  2. DUPIXENT [Concomitant]
     Active Substance: DUPILUMAB
     Indication: Dermatitis atopic
     Dosage: PRE-FILLED SYRINGE, 600 MG SUBCUTANEOUSLY (SQ) INITIAL LOADING DOSE ON 01JAN2021, THEN 300 MG SQ MAI
     Route: 058
     Dates: start: 20210101
  3. DUPIXENT [Concomitant]
     Active Substance: DUPILUMAB
     Dosage: PRE-FILLED SYRINGE, 600 MG SUBCUTANEOUSLY (SQ) INITIAL LOADING DOSE ON 01JAN2021, THEN 300 MG SQ MAI
     Route: 058

REACTIONS (2)
  - Drug ineffective [Unknown]
  - No adverse event [Unknown]
